FAERS Safety Report 12203557 (Version 1)
Quarter: 2016Q1

REPORT INFORMATION
  Report Type: Spontaneous
  Country: US (occurrence: US)
  Receive Date: 20160323
  Receipt Date: 20160323
  Transmission Date: 20160526
  Serious: No
  Sender: FDA-Public Use
  Company Number: US-BRISTOL-MYERS SQUIBB COMPANY-BMS-2016-021181

PATIENT
  Sex: Female
  Weight: 52 kg

DRUGS (3)
  1. ADVIL (MEFENAMIC ACID) [Concomitant]
     Active Substance: MEFENAMIC ACID
     Indication: ARTHRALGIA
     Route: 065
  2. KENALOG-40 [Suspect]
     Active Substance: TRIAMCINOLONE ACETONIDE
     Indication: PRODUCT USED FOR UNKNOWN INDICATION
     Dosage: ONE
     Route: 065
     Dates: start: 201510
  3. ASPIRIN                            /00002701/ [Concomitant]
     Active Substance: ASPIRIN
     Indication: ARTHRALGIA
     Dosage: UNK
     Route: 065
     Dates: start: 201510

REACTIONS (10)
  - Anxiety [Recovered/Resolved]
  - Skin warm [Recovered/Resolved]
  - Palpitations [Recovered/Resolved]
  - Panic reaction [Recovered/Resolved]
  - Erythema [Recovered/Resolved]
  - Hyperhidrosis [Recovered/Resolved]
  - Skin atrophy [Unknown]
  - Skin burning sensation [Recovering/Resolving]
  - Flushing [Recovering/Resolving]
  - Paraesthesia [Recovering/Resolving]
